FAERS Safety Report 14634321 (Version 1)
Quarter: 2018Q1

REPORT INFORMATION
  Report Type: Spontaneous
  Country: US (occurrence: US)
  Receive Date: 20180314
  Receipt Date: 20180314
  Transmission Date: 20180509
  Serious: No
  Sender: FDA-Public Use
  Company Number: US-BIOGEN-2018BI00538841

PATIENT
  Age: 50 Year
  Sex: Female

DRUGS (1)
  1. ZINBRYTA [Suspect]
     Active Substance: DACLIZUMAB
     Indication: PRODUCT USED FOR UNKNOWN INDICATION
     Route: 065

REACTIONS (5)
  - Headache [Unknown]
  - Mood swings [Unknown]
  - Disturbance in attention [Unknown]
  - Neck pain [Unknown]
  - Memory impairment [Unknown]

NARRATIVE: CASE EVENT DATE: 20180307
